FAERS Safety Report 4726585-3 (Version None)
Quarter: 2005Q3

REPORT INFORMATION
  Report Type: 
  Country: None (occurrence: None)
  Receive Date: 20050727
  Receipt Date: 20050428
  Transmission Date: 20060218
  Serious: Yes (Hospitalization)
  Sender: FDA-Public Use
  Company Number: US-MERCK-0505USA00220

PATIENT
  Age: 66 Year
  Sex: Female
  Weight: 100 kg

DRUGS (3)
  1. VIOXX [Suspect]
     Indication: ARTHRITIS
     Route: 048
     Dates: start: 20020801, end: 20040901
  2. ASPIRIN [Concomitant]
     Route: 065
     Dates: start: 20020101
  3. TYLENOL [Concomitant]
     Indication: ARTHRITIS
     Route: 065
     Dates: start: 20000101, end: 20050101

REACTIONS (5)
  - ARTERIAL REPAIR [None]
  - CEREBROVASCULAR ACCIDENT [None]
  - DRUG HYPERSENSITIVITY [None]
  - HAEMATOCHEZIA [None]
  - TRANSIENT ISCHAEMIC ATTACK [None]
